FAERS Safety Report 16693383 (Version 1)
Quarter: 2019Q3

REPORT INFORMATION
  Report Type: Spontaneous
  Country: NL (occurrence: NL)
  Receive Date: 20190812
  Receipt Date: 20190812
  Transmission Date: 20191004
  Serious: Yes (Death, Other)
  Sender: FDA-Public Use
  Company Number: PHHY2019NL182803

PATIENT
  Age: 14 Year
  Sex: Female

DRUGS (6)
  1. MIDAZOLAM [Suspect]
     Active Substance: MIDAZOLAM HYDROCHLORIDE
     Indication: SEIZURE
     Dosage: 15 MG, UNK
     Route: 045
  2. MIDAZOLAM [Suspect]
     Active Substance: MIDAZOLAM HYDROCHLORIDE
     Dosage: 8 MG, UNK
     Route: 065
  3. LAMOTRIGINE. [Interacting]
     Active Substance: LAMOTRIGINE
     Indication: JUVENILE MYOCLONIC EPILEPSY
     Dosage: UNK
     Route: 048
  4. TRAMAL [Interacting]
     Active Substance: TRAMADOL
     Indication: PRODUCT USED FOR UNKNOWN INDICATION
     Dosage: UNK
     Route: 048
  5. CANNABIS [Interacting]
     Active Substance: CANNABIS SATIVA SUBSP. INDICA TOP
     Indication: PRODUCT USED FOR UNKNOWN INDICATION
     Dosage: UNK
     Route: 065
  6. VALPROIC ACID. [Suspect]
     Active Substance: VALPROIC ACID
     Indication: JUVENILE MYOCLONIC EPILEPSY
     Dosage: UNK
     Route: 048

REACTIONS (17)
  - Unresponsive to stimuli [Fatal]
  - Metabolic acidosis [Fatal]
  - Apnoea [Fatal]
  - Lung infiltration [Fatal]
  - Overdose [Fatal]
  - Bradycardia [Fatal]
  - Prescription drug used without a prescription [Fatal]
  - Drug interaction [Fatal]
  - Atelectasis [Fatal]
  - Cerebral ischaemia [Fatal]
  - Brain oedema [Fatal]
  - Cardiovascular insufficiency [Fatal]
  - Epilepsy [Fatal]
  - Respiratory acidosis [Fatal]
  - Toxicity to various agents [Fatal]
  - Brain stem syndrome [Fatal]
  - Drug abuse [Fatal]
